FAERS Safety Report 7579839-X (Version None)
Quarter: 2011Q2

REPORT INFORMATION
  Report Type: 
  Country: None (occurrence: None)
  Receive Date: 20110629
  Receipt Date: 20110621
  Transmission Date: 20111010
  Serious: Yes (Hospitalization)
  Sender: FDA-Public Use
  Company Number: BR-ELI_LILLY_AND_COMPANY-BR201106006327

PATIENT
  Age: 61 Year
  Sex: Female

DRUGS (2)
  1. VINORELBINA [Concomitant]
     Indication: BREAST CANCER METASTATIC
     Dosage: 25 MG/M2, UNKNOWN
     Route: 065
  2. GEMZAR [Suspect]
     Indication: BREAST CANCER METASTATIC
     Dosage: 1000 MG/M2, OTHER
     Route: 065

REACTIONS (8)
  - TACHYCARDIA [None]
  - CHILLS [None]
  - DYSPNOEA [None]
  - MALAISE [None]
  - EYELID OEDEMA [None]
  - HYPERAEMIA [None]
  - PRURITUS [None]
  - HYPERTENSION [None]
